FAERS Safety Report 9317951 (Version 1)
Quarter: 2013Q2

REPORT INFORMATION
  Report Type: Spontaneous
  Country: US (occurrence: US)
  Receive Date: 20130530
  Receipt Date: 20130530
  Transmission Date: 20140414
  Serious: No
  Sender: FDA-Public Use
  Company Number: US-GLAXOSMITHKLINE-A0997172A

PATIENT
  Age: 54 Year
  Sex: Male

DRUGS (3)
  1. VENTOLIN [Suspect]
     Indication: MALAISE
     Dosage: 1PUFF TWICE PER DAY
     Route: 055
     Dates: start: 20121010, end: 20121011
  2. AZITHROMYCIN [Suspect]
     Indication: COUGH
     Route: 065
     Dates: start: 20121010
  3. ATENOLOL [Concomitant]

REACTIONS (1)
  - Drug ineffective [Not Recovered/Not Resolved]
